FAERS Safety Report 15544769 (Version 4)
Quarter: 2018Q4

REPORT INFORMATION
  Report Type: Spontaneous
  Country: PT (occurrence: PT)
  Receive Date: 20181024
  Receipt Date: 20181224
  Transmission Date: 20190205
  Serious: Yes (Other)
  Sender: FDA-Public Use
  Company Number: PT-AUROBINDO-AUR-APL-2018-051679

PATIENT
  Age: 27 Year
  Sex: Male

DRUGS (11)
  1. BIPERIDEN [Suspect]
     Active Substance: BIPERIDEN
     Indication: ABNORMAL BEHAVIOUR
     Dosage: 4 MILLIGRAM, ONCE A DAY
     Route: 048
  2. CHLORPROMAZINE. [Suspect]
     Active Substance: CHLORPROMAZINE
     Indication: ABNORMAL BEHAVIOUR
     Dosage: 50 MG
     Route: 030
  3. RISPERIDONE. [Suspect]
     Active Substance: RISPERIDONE
     Indication: AGITATION
     Dosage: 4 MILLIGRAM, ONCE A DAY
     Route: 048
  4. DIAZEPAM. [Suspect]
     Active Substance: DIAZEPAM
     Indication: ABNORMAL BEHAVIOUR
     Dosage: 10 MILLIGRAM, UNK
     Route: 030
  5. LEVOMEPROMAZINE [Suspect]
     Active Substance: LEVOMEPROMAZINE
     Indication: ABNORMAL BEHAVIOUR
     Dosage: 25 MILLIGRAM, 3 TIMES A DAY
     Route: 048
  6. RISPERIDONE. [Suspect]
     Active Substance: RISPERIDONE
     Indication: ABNORMAL BEHAVIOUR
  7. LORAZEPAM. [Suspect]
     Active Substance: LORAZEPAM
     Indication: AGITATION
     Dosage: 10 MILLIGRAM, ONCE A DAY
     Route: 048
  8. LEVOMEPROMAZINE [Suspect]
     Active Substance: LEVOMEPROMAZINE
     Indication: AGITATION
     Dosage: 300 MILLIGRAM, ONCE A DAY
     Route: 048
  9. LORAZEPAM. [Suspect]
     Active Substance: LORAZEPAM
     Indication: ABNORMAL BEHAVIOUR
  10. LEVOMEPROMAZINE [Suspect]
     Active Substance: LEVOMEPROMAZINE
     Indication: NEUROPSYCHIATRIC SYMPTOMS
     Dosage: 75 MILLIGRAM, ONCE A DAY
     Route: 048
  11. HALOPERIDOL. [Suspect]
     Active Substance: HALOPERIDOL
     Indication: ABNORMAL BEHAVIOUR
     Dosage: 10 MILLIGRAM, UNK
     Route: 030

REACTIONS (4)
  - Drug screen false positive [Recovered/Resolved]
  - Drug ineffective [Unknown]
  - Therapeutic product cross-reactivity [Unknown]
  - Drug abuse [Unknown]
